FAERS Safety Report 4935855-5 (Version None)
Quarter: 2006Q1

REPORT INFORMATION
  Report Type: 
  Country: None (occurrence: None)
  Receive Date: 20060302
  Receipt Date: 20060221
  Transmission Date: 20060701
  Serious: Yes (Other)
  Sender: FDA-Public Use
  Company Number: 2006-02-1332

PATIENT
  Age: 52 Year
  Sex: Male

DRUGS (4)
  1. INTRON A [Suspect]
     Indication: HEPATITIS C
     Dosage: INTRADERMALLY
     Route: 023
     Dates: start: 20050201, end: 20051201
  2. INTRON A [Suspect]
     Indication: HIV INFECTION
     Dosage: INTRADERMALLY
     Route: 023
     Dates: start: 20050201, end: 20051201
  3. INTRON A [Suspect]
     Indication: HEPATITIS C
     Dosage: INTRADERMALLY
     Route: 023
     Dates: start: 20051101, end: 20051201
  4. INTRON A [Suspect]
     Indication: HIV INFECTION
     Dosage: INTRADERMALLY
     Route: 023
     Dates: start: 20051101, end: 20051201

REACTIONS (5)
  - IMPAIRED HEALING [None]
  - INCORRECT ROUTE OF DRUG ADMINISTRATION [None]
  - INJECTION SITE NECROSIS [None]
  - SKIN EXFOLIATION [None]
  - WOUND [None]
